FAERS Safety Report 22243667 (Version 1)
Quarter: 2023Q2

REPORT INFORMATION
  Report Type: Spontaneous
  Country: IT (occurrence: IT)
  Receive Date: 20230424
  Receipt Date: 20230424
  Transmission Date: 20230721
  Serious: Yes (Hospitalization)
  Sender: FDA-Public Use
  Company Number: IT-MYLANLABS-2023M1040104

PATIENT
  Age: 76 Year
  Sex: Female

DRUGS (3)
  1. CREON [Suspect]
     Active Substance: PANCRELIPASE AMYLASE\PANCRELIPASE LIPASE\PANCRELIPASE PROTEASE
     Indication: Product used for unknown indication
     Route: 048
  2. NORVASC [Concomitant]
     Active Substance: AMLODIPINE BESYLATE
     Indication: Hypertension
     Dosage: UNK
  3. PANCREATIN [Suspect]
     Active Substance: PANCRELIPASE
     Indication: Pancreatic failure
     Dosage: UNK (35000)
     Route: 065

REACTIONS (3)
  - Dehydration [Unknown]
  - Renal disorder [Unknown]
  - Diarrhoea [Recovered/Resolved]
